FAERS Safety Report 24864280 (Version 1)
Quarter: 2025Q1

REPORT INFORMATION
  Report Type: Spontaneous
  Country: CN (occurrence: CN)
  Receive Date: 20250120
  Receipt Date: 20250120
  Transmission Date: 20250408
  Serious: Yes (Disabling)
  Sender: JIANGSU HANSOH PHARMACEUTICAL
  Company Number: CN-Jiangsu Hansoh Pharmaceutical Co., Ltd-2169378

PATIENT
  Age: 59 Year
  Sex: Female

DRUGS (4)
  1. PEMETREXED [Suspect]
     Active Substance: PEMETREXED
     Indication: Lung neoplasm malignant
     Dates: start: 20241118, end: 20241118
  2. CISPLATIN [Suspect]
     Active Substance: CISPLATIN
     Dates: start: 20241118, end: 20241120
  3. BEVACIZUMAB [Suspect]
     Active Substance: BEVACIZUMAB
     Dates: start: 20241118, end: 20241118
  4. SINTILIMAB [Suspect]
     Active Substance: SINTILIMAB
     Dates: start: 20241118, end: 20241118

REACTIONS (1)
  - Hypertension [Recovering/Resolving]

NARRATIVE: CASE EVENT DATE: 20241118
